FAERS Safety Report 9316652 (Version 1)
Quarter: 2013Q1

REPORT INFORMATION
  Report Type: Spontaneous
  Country: DE (occurrence: None)
  Receive Date: 20130129
  Receipt Date: 20130129
  Transmission Date: 20140127
  Serious: Yes (Hospitalization)
  Sender: FDA-Public Use
  Company Number: DSA_61514_2012

PATIENT
  Age: 57 Year
  Sex: Female

DRUGS (1)
  1. ELIDEL (ELIDEL-PIMECROLIMUS) (NOT SPECIFIED) [Suspect]
     Indication: ECZEMA
     Route: 061
     Dates: start: 20121023, end: 20121110

REACTIONS (2)
  - Herpes zoster [None]
  - Hypoaesthesia [None]
